FAERS Safety Report 21215997 (Version 1)
Quarter: 2022Q3

REPORT INFORMATION
  Report Type: Spontaneous
  Country: US (occurrence: None)
  Receive Date: 20220815
  Receipt Date: 20220815
  Transmission Date: 20221027
  Serious: Yes (Other)
  Sender: FDA-Public Use
  Company Number: None

PATIENT
  Age: 52 Year
  Sex: Female
  Weight: 101.2 kg

DRUGS (1)
  1. STELARA [Suspect]
     Active Substance: USTEKINUMAB
     Dosage: OTHER FREQUENCY : ONCE EVERY 8 WEEKS;?
     Route: 042
     Dates: start: 20220811, end: 20220811

REACTIONS (4)
  - Infusion related reaction [None]
  - Flushing [None]
  - Lip swelling [None]
  - Throat tightness [None]

NARRATIVE: CASE EVENT DATE: 20220811
